FAERS Safety Report 8565211-2 (Version None)
Quarter: 2012Q3

REPORT INFORMATION
  Report Type: 
  Country: None (occurrence: None)
  Receive Date: 20120803
  Receipt Date: 20120725
  Transmission Date: 20120928
  Serious: Yes (Hospitalization, Congenital Anomaly)
  Sender: FDA-Public Use
  Company Number: US-GLAXOSMITHKLINE-A0988090A

PATIENT
  Sex: Female

DRUGS (4)
  1. LEVOXYL [Concomitant]
  2. HYDROCHLOROTHIAZIDE [Concomitant]
  3. DULCOLAX [Concomitant]
  4. PAXIL [Suspect]
     Indication: PRODUCT USED FOR UNKNOWN INDICATION
     Dosage: 20MG PER DAY
     Route: 064

REACTIONS (8)
  - HYPERGLYCAEMIA [None]
  - CONVULSION [None]
  - THROMBOCYTOPENIA NEONATAL [None]
  - ABDOMINAL DISTENSION [None]
  - TREMOR [None]
  - CARDIAC MURMUR [None]
  - FOETAL EXPOSURE DURING PREGNANCY [None]
  - CONGENITAL PULMONARY HYPERTENSION [None]
